FAERS Safety Report 25013763 (Version 1)
Quarter: 2025Q1

REPORT INFORMATION
  Report Type: Spontaneous
  Country: US (occurrence: US)
  Receive Date: 20250226
  Receipt Date: 20250226
  Transmission Date: 20250409
  Serious: No
  Sender: UCB
  Company Number: US-UCBSA-2024039656

PATIENT
  Sex: Female

DRUGS (12)
  1. KEPPRA [Suspect]
     Active Substance: LEVETIRACETAM
     Indication: Seizure
  2. VITAMINS [Concomitant]
     Active Substance: VITAMINS
     Indication: Product used for unknown indication
  3. VITAMIN D3 [Concomitant]
     Active Substance: CHOLECALCIFEROL
     Indication: Product used for unknown indication
  4. LAMOTRIGINE [Concomitant]
     Active Substance: LAMOTRIGINE
     Indication: Product used for unknown indication
  5. CALCIUM [Concomitant]
     Active Substance: CALCIUM
     Indication: Product used for unknown indication
  6. GABAPENTIN [Concomitant]
     Active Substance: GABAPENTIN
     Indication: Product used for unknown indication
  7. TIZANIDINE [Concomitant]
     Active Substance: TIZANIDINE
     Indication: Product used for unknown indication
  8. L ORNITHINE [Concomitant]
  9. MAGNESIUM OXIDE [Concomitant]
     Active Substance: MAGNESIUM OXIDE
  10. CITRIC ACID [Concomitant]
     Active Substance: CITRIC ACID MONOHYDRATE
  11. BETAINE [Concomitant]
     Active Substance: BETAINE
  12. SORBITOL [Concomitant]
     Active Substance: SORBITOL

REACTIONS (7)
  - Drug hypersensitivity [Unknown]
  - Lethargy [Unknown]
  - Anaemia [Unknown]
  - Urticaria [Unknown]
  - Pruritus [Unknown]
  - Anger [Unknown]
  - Catatonia [Unknown]
